FAERS Safety Report 12584207 (Version 1)
Quarter: 2016Q3

REPORT INFORMATION
  Report Type: Spontaneous
  Country: RU (occurrence: RU)
  Receive Date: 20160722
  Receipt Date: 20160722
  Transmission Date: 20161109
  Serious: Yes (Disabling)
  Sender: FDA-Public Use
  Company Number: ALCN2016RU004924

PATIENT
  Age: 65 Year
  Sex: Male

DRUGS (2)
  1. OPHTALMOFERON [Concomitant]
     Indication: CONJUNCTIVITIS VIRAL
     Dosage: UNK
     Route: 047
     Dates: start: 20160708, end: 20160709
  2. VIGAMOX [Suspect]
     Active Substance: MOXIFLOXACIN HYDROCHLORIDE
     Indication: CONJUNCTIVITIS BACTERIAL
     Dosage: UNK
     Route: 047
     Dates: start: 20160708, end: 20160709

REACTIONS (5)
  - Eye oedema [Recovering/Resolving]
  - Eyelid oedema [Recovering/Resolving]
  - Eye pain [Recovering/Resolving]
  - Conjunctival oedema [Recovering/Resolving]
  - Erythema of eyelid [Recovering/Resolving]

NARRATIVE: CASE EVENT DATE: 20160708
